FAERS Safety Report 15164572 (Version 1)
Quarter: 2018Q3

REPORT INFORMATION
  Report Type: Spontaneous
  Country: ZA (occurrence: ZA)
  Receive Date: 20180719
  Receipt Date: 20180719
  Transmission Date: 20181010
  Serious: Yes (Hospitalization)
  Sender: FDA-Public Use
  Company Number: ZA-BAYER-2018-135889

PATIENT
  Sex: Male
  Weight: 1.5 kg

DRUGS (1)
  1. MIRENA [Suspect]
     Active Substance: LEVONORGESTREL
     Indication: CONTRACEPTION
     Dosage: UNK
     Route: 064

REACTIONS (5)
  - Low birth weight baby [Not Recovered/Not Resolved]
  - Pallor [None]
  - Hypothermia neonatal [None]
  - Foetal exposure during pregnancy [None]
  - Premature baby [None]
